FAERS Safety Report 15135813 (Version 2)
Quarter: 2018Q3

REPORT INFORMATION
  Report Type: Spontaneous
  Country: FR (occurrence: FR)
  Receive Date: 20180712
  Receipt Date: 20180731
  Transmission Date: 20181010
  Serious: Yes (Other)
  Sender: FDA-Public Use
  Company Number: FR-MYLANLABS-2018M1049467

PATIENT
  Sex: Male
  Weight: 59 kg

DRUGS (7)
  1. SAQUINAVIR HEXAL [Concomitant]
     Indication: HIV INFECTION
     Dosage: UNK
     Route: 065
  2. LAMIVUDINE. [Suspect]
     Active Substance: LAMIVUDINE
     Indication: HIV INFECTION
     Dosage: 300 MG, QD
     Route: 065
  3. AZTREONAM LYSINE [Concomitant]
     Active Substance: AZTREONAM LYSINE
     Indication: HIV INFECTION
     Dosage: UNK
     Route: 065
  4. ATAZANAVIR. [Concomitant]
     Active Substance: ATAZANAVIR SULFATE
     Indication: HIV INFECTION
     Dosage: UNK
     Route: 065
  5. TRUVADA [Suspect]
     Active Substance: EMTRICITABINE\TENOFOVIR DISOPROXIL FUMARATE
     Indication: HIV INFECTION
     Dosage: UNK
     Route: 065
  6. DOLUTEGRAVIR [Suspect]
     Active Substance: DOLUTEGRAVIR
     Indication: HIV INFECTION
     Dosage: 50 MG, BID
     Route: 065
  7. AMPRENAVIR [Concomitant]
     Active Substance: AMPRENAVIR
     Indication: HIV INFECTION
     Dosage: UNK
     Route: 065

REACTIONS (7)
  - Drug ineffective for unapproved indication [Unknown]
  - Salmonellosis [Unknown]
  - Chronic kidney disease [Unknown]
  - Off label use [Recovered/Resolved]
  - Renal tubular disorder [Unknown]
  - Blood HIV RNA increased [Not Recovered/Not Resolved]
  - Diarrhoea [Unknown]

NARRATIVE: CASE EVENT DATE: 2002
